FAERS Safety Report 8328336-2 (Version None)
Quarter: 2012Q2

REPORT INFORMATION
  Report Type: 
  Country: None (occurrence: None)
  Receive Date: 20120502
  Receipt Date: 20120423
  Transmission Date: 20120825
  Serious: Yes (Hospitalization)
  Sender: FDA-Public Use
  Company Number: US-BAYER-2011-070818

PATIENT
  Age: 18 Year
  Sex: Female
  Weight: 104 kg

DRUGS (6)
  1. YAZ [Suspect]
     Indication: CONTRACEPTION
     Dosage: UNK
     Dates: start: 20071213, end: 20080706
  2. YAZ [Suspect]
     Indication: VAGINAL HAEMORRHAGE
  3. LOESTRIN 1.5/30 [Concomitant]
     Indication: CONTRACEPTION
     Dosage: UNK
     Dates: start: 20080922, end: 20090128
  4. NEXIUM [Concomitant]
  5. NAPROXEN [Concomitant]
  6. CIPROFLOXACIN HCL [Concomitant]

REACTIONS (10)
  - VOMITING [None]
  - PAIN [None]
  - ABDOMINAL PAIN [None]
  - NAUSEA [None]
  - EMOTIONAL DISTRESS [None]
  - ANXIETY [None]
  - INJURY [None]
  - BILIARY DYSKINESIA [None]
  - ABDOMINAL PAIN UPPER [None]
  - CHOLELITHIASIS [None]
